FAERS Safety Report 14987411 (Version 2)
Quarter: 2018Q2

REPORT INFORMATION
  Report Type: Spontaneous
  Country: US (occurrence: US)
  Receive Date: 20180608
  Receipt Date: 20180619
  Transmission Date: 20180711
  Serious: Yes (Hospitalization, Other)
  Sender: FDA-Public Use
  Company Number: US-DRREDDYS-USA/USA/18/0099960

PATIENT
  Age: 67 Year
  Sex: Male

DRUGS (9)
  1. ONDANSETRON [Suspect]
     Active Substance: ONDANSETRON
     Indication: PRODUCT USED FOR UNKNOWN INDICATION
     Route: 065
  2. OXYCODONE [Suspect]
     Active Substance: OXYCODONE
     Indication: PAIN
     Route: 065
  3. WARFARIN [Concomitant]
     Active Substance: WARFARIN
     Indication: PRODUCT USED FOR UNKNOWN INDICATION
     Route: 065
  4. CITALOPRAM [Suspect]
     Active Substance: CITALOPRAM HYDROBROMIDE
     Indication: PRODUCT USED FOR UNKNOWN INDICATION
     Dosage: TWICE THE RECOMMENDED GERIATRIC DOSE
     Route: 065
  5. CLONAZEPAM. [Suspect]
     Active Substance: CLONAZEPAM
     Indication: PRODUCT USED FOR UNKNOWN INDICATION
     Dosage: DOSE DECREASED
     Route: 065
  6. TRAMADOL. [Suspect]
     Active Substance: TRAMADOL
     Indication: PAIN
     Route: 065
  7. FENTANYL. [Suspect]
     Active Substance: FENTANYL
     Dosage: HE UNDERWENT HIP REPAIR DURING WHICH HE RECEIVED FENTANYL
  8. BUPROPION. [Suspect]
     Active Substance: BUPROPION
     Indication: PRODUCT USED FOR UNKNOWN INDICATION
     Route: 065
  9. FENTANYL. [Suspect]
     Active Substance: FENTANYL
     Indication: PRODUCT USED FOR UNKNOWN INDICATION
     Dosage: GLUTEAL COMPARTMENT SYNDROME, NECESSITATING EMERGENT SURGERY REQURING ADDITIONAL FENTANYL
     Route: 065

REACTIONS (4)
  - Compartment syndrome [Recovered/Resolved]
  - Drug prescribing error [Unknown]
  - Condition aggravated [Recovered/Resolved]
  - Serotonin syndrome [Recovered/Resolved]
